FAERS Safety Report 5689056-6 (Version None)
Quarter: 2008Q1

REPORT INFORMATION
  Report Type: 
  Country: None (occurrence: None)
  Receive Date: 20080331
  Receipt Date: 20080325
  Transmission Date: 20080703
  Serious: Yes (Disabling)
  Sender: FDA-Public Use
  Company Number: B0513709A

PATIENT
  Sex: Female

DRUGS (3)
  1. FLUTIDE DISKUS [Suspect]
     Indication: ASTHMA
     Dosage: 200MCG TWICE PER DAY
     Route: 055
     Dates: start: 20040903, end: 20080314
  2. SEREVENT [Concomitant]
     Route: 055
     Dates: start: 20070901
  3. SINGULAIR [Concomitant]
     Route: 048
     Dates: start: 20071001

REACTIONS (1)
  - HYPOSMIA [None]
